FAERS Safety Report 20055798 (Version 1)
Quarter: 2021Q4

REPORT INFORMATION
  Report Type: Spontaneous
  Country: US (occurrence: US)
  Receive Date: 20211111
  Receipt Date: 20211111
  Transmission Date: 20220304
  Serious: No
  Sender: FDA-Public Use
  Company Number: US-CADILA HEALTHCARE LIMITED-US-ZYDUS-068813

PATIENT

DRUGS (1)
  1. ACETAZOLAMIDE [Suspect]
     Active Substance: ACETAZOLAMIDE
     Indication: Glaucoma
     Dosage: 500 MILLIGRAM, BID
     Route: 048
     Dates: start: 20210723, end: 20210725

REACTIONS (5)
  - Asthenia [Recovered/Resolved]
  - Confusional state [Recovered/Resolved]
  - Abdominal discomfort [Recovered/Resolved]
  - Depression [Recovered/Resolved]
  - Negative thoughts [Recovered/Resolved]

NARRATIVE: CASE EVENT DATE: 20210723
